FAERS Safety Report 6600603-X (Version None)
Quarter: 2010Q1

REPORT INFORMATION
  Report Type: 
  Country: None (occurrence: None)
  Receive Date: 20100223
  Receipt Date: 20100223
  Transmission Date: 20100710
  Serious: Yes (Hospitalization)
  Sender: FDA-Public Use
  Company Number: None

PATIENT
  Age: 66 Year
  Sex: Male
  Weight: 99 kg

DRUGS (1)
  1. OXALIPLATIN [Suspect]
     Indication: COLORECTAL CANCER
     Dosage: 185MG EVERY 14 DAYS IV
     Route: 042
     Dates: start: 20100217

REACTIONS (6)
  - BRADYCARDIA [None]
  - FAECAL INCONTINENCE [None]
  - HYPOTENSION [None]
  - INFUSION RELATED REACTION [None]
  - SYNCOPE [None]
  - URINARY INCONTINENCE [None]
